FAERS Safety Report 6019031-3 (Version None)
Quarter: 2008Q4

REPORT INFORMATION
  Report Type: 
  Country: None (occurrence: None)
  Receive Date: 20081221
  Receipt Date: 20081221
  Transmission Date: 20090506
  Serious: No
  Sender: FDA-Public Use
  Company Number: None

PATIENT
  Age: 29 Year
  Sex: Male
  Weight: 78.9259 kg

DRUGS (1)
  1. HALDOL [Suspect]

REACTIONS (1)
  - NO ADVERSE EVENT [None]
